FAERS Safety Report 13956567 (Version 2)
Quarter: 2018Q1

REPORT INFORMATION
  Report Type: Spontaneous
  Country: BR (occurrence: BR)
  Receive Date: 20170912
  Receipt Date: 20180209
  Transmission Date: 20180508
  Serious: Yes (Life-Threatening, Hospitalization)
  Sender: FDA-Public Use
  Company Number: PHHY2017BR133481

PATIENT
  Age: 71 Year
  Sex: Female
  Weight: 60.65 kg

DRUGS (7)
  1. LETROZOLE. [Suspect]
     Active Substance: LETROZOLE
     Indication: BREAST CANCER
     Dosage: 1 DF, QD
     Route: 048
     Dates: start: 20140701, end: 20170706
  2. OMEPRAZOLE. [Concomitant]
     Active Substance: OMEPRAZOLE
     Indication: PROPHYLAXIS AGAINST GASTROINTESTINAL ULCER
     Dosage: UNK
     Route: 065
     Dates: start: 201612
  3. ROSUVASTATIN. [Concomitant]
     Active Substance: ROSUVASTATIN
     Indication: ARTERIOSCLEROSIS CORONARY ARTERY
     Dosage: UNK
     Route: 065
     Dates: start: 201612
  4. ENALAPRIL [Concomitant]
     Active Substance: ENALAPRIL
     Indication: ARTERIOSCLEROSIS CORONARY ARTERY
     Dosage: UNK
     Route: 065
     Dates: start: 201612
  5. PALBOCICLIB [Suspect]
     Active Substance: PALBOCICLIB
     Indication: ARTERIOSCLEROSIS CORONARY ARTERY
     Dosage: 1 DF, QD
     Route: 048
     Dates: start: 20161213, end: 20170626
  6. CARVEDILOL. [Concomitant]
     Active Substance: CARVEDILOL
     Indication: ARTERIOSCLEROSIS CORONARY ARTERY
     Dosage: UNK
     Route: 065
     Dates: start: 201612
  7. ACETYLSALICYLIC ACID [Concomitant]
     Active Substance: ASPIRIN
     Indication: ARTERIOSCLEROSIS CORONARY ARTERY
     Dosage: UNK
     Route: 065
     Dates: start: 201612

REACTIONS (5)
  - Chest pain [Unknown]
  - Condition aggravated [Recovered/Resolved]
  - Left ventricular dysfunction [Unknown]
  - Carotid artery thrombosis [Unknown]
  - Arteriosclerosis coronary artery [Recovered/Resolved]

NARRATIVE: CASE EVENT DATE: 20170630
